FAERS Safety Report 17453127 (Version 1)
Quarter: 2020Q1

REPORT INFORMATION
  Report Type: Spontaneous
  Country: FR (occurrence: FR)
  Receive Date: 20200224
  Receipt Date: 20200224
  Transmission Date: 20200409
  Serious: Yes (Hospitalization)
  Sender: FDA-Public Use
  Company Number: FR-MYLANLABS-2020M1019252

PATIENT
  Age: 73 Year
  Sex: Female
  Weight: 51.8 kg

DRUGS (4)
  1. RULID [Suspect]
     Active Substance: ROXITHROMYCIN
     Indication: LUNG DISORDER
     Dosage: 3 DOSAGE FORM, QD
     Route: 048
     Dates: start: 20190217, end: 20190220
  2. AMOXICILLIN. [Suspect]
     Active Substance: AMOXICILLIN
     Indication: LUNG DISORDER
     Dosage: 3 GRAM, QD
     Route: 048
     Dates: start: 20190211, end: 20190217
  3. PANTOPRAZOLE [Suspect]
     Active Substance: PANTOPRAZOLE
     Indication: PRODUCT USED FOR UNKNOWN INDICATION
     Dosage: 20 MILLIGRAM, QD
     Route: 048
     Dates: start: 20190211, end: 20190220
  4. SOLUPRED                           /00016217/ [Suspect]
     Active Substance: PREDNISOLONE SODIUM METAZOATE
     Indication: INFLAMMATION
     Dosage: 1 DOSAGE FORM, QD
     Route: 048
     Dates: start: 20190211, end: 20190220

REACTIONS (2)
  - Arthralgia [Recovered/Resolved]
  - Vascular purpura [Recovered/Resolved]

NARRATIVE: CASE EVENT DATE: 20190220
